FAERS Safety Report 5152684-0 (Version None)
Quarter: 2006Q4

REPORT INFORMATION
  Report Type: 
  Country: None (occurrence: None)
  Receive Date: 20061116
  Receipt Date: 20061010
  Transmission Date: 20070319
  Serious: Yes (Hospitalization, Other)
  Sender: FDA-Public Use
  Company Number: JP-MERCK-0610USA08470

PATIENT
  Age: 72 Year
  Sex: Male
  Weight: 52 kg

DRUGS (3)
  1. STROMECTOL [Suspect]
     Indication: ACARODERMATITIS
     Route: 048
     Dates: start: 20060923, end: 20060923
  2. STROMECTOL [Suspect]
     Route: 048
     Dates: start: 20060911, end: 20060911
  3. EURAX [Concomitant]
     Indication: ACARODERMATITIS
     Route: 061
     Dates: start: 20060904, end: 20060930

REACTIONS (4)
  - FACE OEDEMA [None]
  - OEDEMA [None]
  - OEDEMA PERIPHERAL [None]
  - SCROTAL OEDEMA [None]
